FAERS Safety Report 11631880 (Version 2)
Quarter: 2015Q4

REPORT INFORMATION
  Report Type: Spontaneous
  Country: US (occurrence: US)
  Receive Date: 20151015
  Receipt Date: 20151020
  Transmission Date: 20160304
  Serious: Yes (Death, Hospitalization, Other)
  Sender: FDA-Public Use
  Company Number: US-TEVA-601493USA

PATIENT
  Age: 63 Year
  Sex: Male

DRUGS (3)
  1. AMIODARONE [Suspect]
     Active Substance: AMIODARONE
     Indication: ATRIAL FIBRILLATION
     Route: 065
  2. DEXAMETHASONE. [Suspect]
     Active Substance: DEXAMETHASONE
     Indication: HYPERTHYROIDISM
     Dosage: 6 MG/DAY, TAPERED TO 0.75MG ONCE DAILY
     Route: 065
  3. DEXAMETHASONE. [Suspect]
     Active Substance: DEXAMETHASONE
     Indication: HYPERTHYROIDISM
     Dosage: 0.75MG ONCE DAILY
     Route: 065

REACTIONS (8)
  - Septic shock [Fatal]
  - Metabolic acidosis [Unknown]
  - Respiratory acidosis [Unknown]
  - Pneumocystis jirovecii pneumonia [Fatal]
  - Acute kidney injury [Unknown]
  - Cardio-respiratory arrest [Fatal]
  - Hypothyroidism [Unknown]
  - Hyperthyroidism [Unknown]
